FAERS Safety Report 10327093 (Version 2)
Quarter: 2015Q1

REPORT INFORMATION
  Report Type: Other
  Country: US (occurrence: US)
  Receive Date: 20140720
  Receipt Date: 20150205
  Transmission Date: 20150720
  Serious: Yes (Hospitalization, Other)
  Sender: FDA-Public Use
  Company Number: US-GSKPPD-2014GSK025515

PATIENT
  Age: 60 Year
  Sex: Female

DRUGS (4)
  1. PLAVIX [Concomitant]
     Active Substance: CLOPIDOGREL BISULFATE
  2. AVANDIA [Suspect]
     Active Substance: ROSIGLITAZONE MALEATE
     Indication: DIABETES MELLITUS
     Dosage: AVANDIA WAS NOT LISTED AMONG THE PATIENTS RECORDS REVIEWED.
     Route: 048
  3. ASPIRIN. [Concomitant]
     Active Substance: ASPIRIN
  4. DIOVAN [Concomitant]
     Active Substance: VALSARTAN

REACTIONS (3)
  - Coronary artery disease [Recovered/Resolved]
  - Cardiac failure congestive [Unknown]
  - Angina pectoris [Recovered/Resolved]

NARRATIVE: CASE EVENT DATE: 20060427
